FAERS Safety Report 5642050-3 (Version None)
Quarter: 2008Q1

REPORT INFORMATION
  Report Type: 
  Country: None (occurrence: None)
  Receive Date: 20080225
  Receipt Date: 20080208
  Transmission Date: 20080703
  Serious: Yes (Hospitalization)
  Sender: FDA-Public Use
  Company Number: DSA_31359_2008

PATIENT
  Sex: Male

DRUGS (1)
  1. LORAZEPAM [Suspect]
     Dosage: (3 MG 1X NOT THE PRESCRIBED AMOUNT.  ORAL)
     Route: 048
     Dates: start: 20080120, end: 20080120

REACTIONS (3)
  - ACCIDENTAL OVERDOSE [None]
  - FATIGUE [None]
  - GAIT DISTURBANCE [None]
